FAERS Safety Report 14874450 (Version 1)
Quarter: 2018Q2

REPORT INFORMATION
  Report Type: Report from Study
  Country: DE (occurrence: DE)
  Receive Date: 20180510
  Receipt Date: 20180510
  Transmission Date: 20180711
  Serious: Yes (Other)
  Sender: FDA-Public Use
  Company Number: DE-AUROBINDO-AUR-APL-2018-025030

PATIENT

DRUGS (3)
  1. FENTANYL. [Suspect]
     Active Substance: FENTANYL
     Indication: CAESAREAN SECTION
     Dosage: 0.4 MILLILITER, ONCE A DAY
     Route: 064
  2. AKRINOR [Concomitant]
     Active Substance: CAFEDRINE HYDROCHLORIDE\THEODRENALINE
     Indication: PROPHYLAXIS
     Dosage: 0.5 ML: 200 MG/2 ML CAFEDRINHYDROCHLORIDE AND 10 MG/2 ML THEODRENALINHYDROCHLORIDE
     Route: 064
  3. BUPIVACAINE SOLUTION FOR INJECTION [Suspect]
     Active Substance: BUPIVACAINE
     Indication: CAESAREAN SECTION
     Dosage: 2 MILLILITER, ONCE A DAY
     Route: 064

REACTIONS (2)
  - Foetal acidosis [Unknown]
  - Maternal exposure during delivery [Unknown]
